FAERS Safety Report 5587692-9 (Version None)
Quarter: 2008Q1

REPORT INFORMATION
  Report Type: 
  Country: None (occurrence: None)
  Receive Date: 20080108
  Receipt Date: 20071226
  Transmission Date: 20080703
  Serious: Yes (Other)
  Sender: FDA-Public Use
  Company Number: 2007BI020982

PATIENT
  Age: 56 Year
  Sex: Female

DRUGS (1)
  1. AVONEX [Suspect]
     Indication: MULTIPLE SCLEROSIS
     Dosage: 30 UG; QW; IM
     Route: 030
     Dates: start: 19970101, end: 20070901

REACTIONS (9)
  - BACK PAIN [None]
  - CONTUSION [None]
  - EPISTAXIS [None]
  - GASTRITIS [None]
  - GASTROINTESTINAL INFLAMMATION [None]
  - HEADACHE [None]
  - HEPATITIS [None]
  - LEUKOCYTOCLASTIC VASCULITIS [None]
  - MUSCULOSKELETAL DISCOMFORT [None]
